FAERS Safety Report 18293182 (Version 1)
Quarter: 2020Q3

REPORT INFORMATION
  Report Type: Spontaneous
  Country: US (occurrence: US)
  Receive Date: 20200921
  Receipt Date: 20200921
  Transmission Date: 20201103
  Serious: Yes (Other)
  Sender: FDA-Public Use
  Company Number: None

PATIENT
  Age: 44 Year
  Sex: Female

DRUGS (1)
  1. DOVATO [Suspect]
     Active Substance: DOLUTEGRAVIR SODIUM\LAMIVUDINE
     Route: 048
     Dates: start: 20200904, end: 20200918

REACTIONS (6)
  - Peripheral swelling [None]
  - Joint swelling [None]
  - Pruritus [None]
  - Rash [None]
  - Blister [None]
  - Decreased appetite [None]

NARRATIVE: CASE EVENT DATE: 20200921
